FAERS Safety Report 8080555-9 (Version None)
Quarter: 2012Q1

REPORT INFORMATION
  Report Type: 
  Country: None (occurrence: None)
  Receive Date: 20120130
  Receipt Date: 20120124
  Transmission Date: 20120608
  Serious: No
  Sender: FDA-Public Use
  Company Number: US-BAYER-2012-008754

PATIENT
  Sex: Male

DRUGS (3)
  1. ACETAMINOPHEN [Suspect]
     Indication: TOOTHACHE
  2. IBUPROFEN [Suspect]
     Indication: TOOTHACHE
  3. ALEVE (CAPLET) [Suspect]
     Indication: TOOTHACHE
     Route: 048

REACTIONS (1)
  - EYE SWELLING [None]
